FAERS Safety Report 13366226 (Version 1)
Quarter: 2017Q1

REPORT INFORMATION
  Report Type: Report from Study
  Country: US (occurrence: US)
  Receive Date: 20170323
  Receipt Date: 20170323
  Transmission Date: 20170429
  Serious: Yes (Hospitalization, Other)
  Sender: FDA-Public Use
  Company Number: US-JNJFOC-20170321128

PATIENT
  Age: 67 Year
  Sex: Male
  Weight: 112.49 kg

DRUGS (1)
  1. USTEKINUMAB [Suspect]
     Active Substance: USTEKINUMAB
     Indication: PSORIASIS
     Route: 058
     Dates: start: 201606, end: 201610

REACTIONS (1)
  - Staphylococcal abscess [Recovered/Resolved with Sequelae]

NARRATIVE: CASE EVENT DATE: 20170203
